APPROVED DRUG PRODUCT: PERCORTEN
Active Ingredient: DESOXYCORTICOSTERONE ACETATE
Strength: 125MG
Dosage Form/Route: PELLET;IMPLANTATION
Application: N005151 | Product #001
Applicant: NOVARTIS PHARMACEUTICALS CORP
Approved: Approved Prior to Jan 1, 1982 | RLD: No | RS: No | Type: DISCN